FAERS Safety Report 18312195 (Version 1)
Quarter: 2020Q3

REPORT INFORMATION
  Report Type: Spontaneous
  Country: CN (occurrence: CN)
  Receive Date: 20200925
  Receipt Date: 20200925
  Transmission Date: 20201103
  Serious: Yes (Other)
  Sender: FDA-Public Use
  Company Number: CN-PFIZER INC-2020369097

PATIENT
  Age: 33 Year
  Sex: Female
  Weight: 41 kg

DRUGS (1)
  1. FRAGMIN [Suspect]
     Active Substance: DALTEPARIN SODIUM
     Indication: ABORTION THREATENED
     Dosage: 0.2 ML, 1X/DAY
     Route: 058
     Dates: start: 20200911, end: 20200913

REACTIONS (5)
  - Drug hypersensitivity [Recovered/Resolved]
  - Off label use [Unknown]
  - Syncope [Recovered/Resolved]
  - Product use in unapproved indication [Unknown]
  - Chest discomfort [Recovered/Resolved]

NARRATIVE: CASE EVENT DATE: 20200911
